FAERS Safety Report 6165670-9 (Version None)
Quarter: 2009Q2

REPORT INFORMATION
  Report Type: 
  Country: None (occurrence: None)
  Receive Date: 20090423
  Receipt Date: 20090416
  Transmission Date: 20091009
  Serious: Yes (Other)
  Sender: FDA-Public Use
  Company Number: PHHY2009BR14514

PATIENT
  Age: 23 Year
  Sex: Male
  Weight: 45 kg

DRUGS (4)
  1. SANDOSTATIN [Suspect]
     Indication: CENTRAL NERVOUS SYSTEM DERMOID TUMOUR
     Dosage: 0.1 MG
  2. SANDOSTATIN [Suspect]
     Dosage: 0.8 MG DAILY DIVIDED INTO 4 TIMES A DAY
     Dates: end: 20090405
  3. DEXAMETHASONE [Concomitant]
     Dosage: 8 MG DAILY
  4. OMEPRAZOL [Concomitant]
     Dosage: UNK

REACTIONS (3)
  - ADRENERGIC SYNDROME [None]
  - INSOMNIA [None]
  - TACHYPHRENIA [None]
